FAERS Safety Report 20340725 (Version 2)
Quarter: 2022Q3

REPORT INFORMATION
  Report Type: Spontaneous
  Country: CH (occurrence: CH)
  Receive Date: 20220117
  Receipt Date: 20220922
  Transmission Date: 20221026
  Serious: Yes (Hospitalization, Other)
  Sender: FDA-Public Use
  Company Number: None

PATIENT
  Age: 67 Year
  Sex: Female

DRUGS (15)
  1. LYRICA [Suspect]
     Active Substance: PREGABALIN
     Dosage: 100 MG, 2X/DAY
     Route: 048
  2. ZOLPIDEM [Suspect]
     Active Substance: ZOLPIDEM TARTRATE
     Dosage: 10 MG
     Route: 048
     Dates: end: 20211204
  3. IMOVANE [Suspect]
     Active Substance: ZOPICLONE
     Dosage: 7.5 MG, 1X/DAY, STOPPED
     Dates: end: 202112
  4. REMERON [Suspect]
     Active Substance: MIRTAZAPINE
     Dosage: 30 MG, 1X/DAY
  5. TRAZODONE HYDROCHLORIDE [Suspect]
     Active Substance: TRAZODONE HYDROCHLORIDE
     Dosage: 100 MG, 1X/DAY
     Route: 048
  6. OXAZEPAM [Suspect]
     Active Substance: OXAZEPAM
     Dosage: 15 MG, 3X/DAY WITH MEAL
     Route: 048
     Dates: end: 202112
  7. MELATONIN [Suspect]
     Active Substance: MELATONIN
     Dosage: 2 MG, 1X/DAY
     Route: 048
  8. DOXYLAMINE [Suspect]
     Active Substance: DOXYLAMINE
     Dosage: 1 DF, 1X/DAY
     Dates: end: 202112
  9. MORPHINE [Suspect]
     Active Substance: MORPHINE
     Dosage: 5 MG, 4X/DAY WITH MEAL
     Dates: end: 202112
  10. CANNABIDIOL [Suspect]
     Active Substance: CANNABIDIOL
     Dosage: 1 DF, 1X/DAY
     Route: 048
  11. NEXIUM [Concomitant]
     Active Substance: ESOMEPRAZOLE MAGNESIUM
     Route: 048
  12. BETAHISTINE HYDROCHLORIDE [Concomitant]
     Active Substance: BETAHISTINE HYDROCHLORIDE
     Route: 048
  13. SODIUM PICOSULFATE [Concomitant]
     Active Substance: SODIUM PICOSULFATE
     Dosage: AS NECESSARY, WITH MEAL
     Route: 048
  14. MAGALDRATE [Concomitant]
     Active Substance: MAGALDRATE
     Dosage: AS NECESSARY
     Route: 048
  15. SYMFONA [GINKGO BILOBA ACETONE EXTRACT] [Concomitant]
     Route: 048

REACTIONS (5)
  - Confusional state [Recovered/Resolved]
  - Fall [Recovered/Resolved]
  - Blood sodium decreased [Recovered/Resolved]
  - Blood urea decreased [Recovered/Resolved]
  - C-reactive protein increased [Unknown]

NARRATIVE: CASE EVENT DATE: 20211204
